FAERS Safety Report 5903345-9 (Version None)
Quarter: 2008Q3

REPORT INFORMATION
  Report Type: 
  Country: None (occurrence: None)
  Receive Date: 20080926
  Receipt Date: 20080912
  Transmission Date: 20090109
  Serious: Yes (Death)
  Sender: FDA-Public Use
  Company Number: KADN20080028

PATIENT
  Age: 45 Year
  Sex: Female
  Weight: 57.1532 kg

DRUGS (10)
  1. KADIAN [Suspect]
     Indication: BACK PAIN
     Dosage: 1 CAP BID, PER ORAL
     Route: 048
     Dates: start: 20080424, end: 20080501
  2. PERCOCET [Suspect]
     Indication: PAIN
     Dosage: 1 TAB Q4-6H PRN, PER ORAL
     Route: 048
     Dates: end: 20080101
  3. TRAZODONE HCL [Suspect]
     Dosage: 1 TAB  QHS, PER ORAL
     Route: 048
     Dates: end: 20080101
  4. ZOLPIDEM [Suspect]
     Dates: end: 20080101
  5. MEPROBAMATE [Suspect]
     Dates: end: 20080101
  6. PROMETHAZINE [Suspect]
     Dates: end: 20080101
  7. ONDANSETRON [Suspect]
     Dates: end: 20080101
  8. RANITIDINE [Suspect]
     Dates: end: 20080101
  9. KLONOPIN [Suspect]
     Dosage: 1 TAB TID, PER ORAL
     Route: 048
     Dates: end: 20080101
  10. LITHIUM CARBONATE [Suspect]
     Dosage: 1 TAB TID, PER ORAL
     Route: 048
     Dates: end: 20080101

REACTIONS (20)
  - ACCIDENTAL DEATH [None]
  - ATELECTASIS [None]
  - BRONCHIAL SECRETION RETENTION [None]
  - CONTUSION [None]
  - DRUG TOXICITY [None]
  - ECCHYMOSIS [None]
  - EXCORIATION [None]
  - HAEMATOMA [None]
  - HEAD INJURY [None]
  - HEPATIC CIRRHOSIS [None]
  - HEPATIC CONGESTION [None]
  - HEPATIC STEATOSIS [None]
  - LOSS OF CONSCIOUSNESS [None]
  - PERIORBITAL DISORDER [None]
  - PITTING OEDEMA [None]
  - PULMONARY CONGESTION [None]
  - RENAL DISORDER [None]
  - SWELLING FACE [None]
  - SYNCOPE [None]
  - TRAUMATIC HAEMATOMA [None]
